FAERS Safety Report 20286468 (Version 1)
Quarter: 2022Q1

REPORT INFORMATION
  Report Type: Spontaneous
  Country: FR (occurrence: FR)
  Receive Date: 20220103
  Receipt Date: 20220103
  Transmission Date: 20220423
  Serious: Yes (Hospitalization)
  Sender: FDA-Public Use
  Company Number: None

PATIENT
  Age: 54 Year
  Sex: Male

DRUGS (2)
  1. ESOMEPRAZOLE [Suspect]
     Active Substance: ESOMEPRAZOLE
     Indication: Arthralgia
     Dates: start: 20211008, end: 20211101
  2. NABUMETONE [Suspect]
     Active Substance: NABUMETONE
     Indication: Arthralgia
     Dates: start: 20211008, end: 20211101

REACTIONS (4)
  - Cutaneous vasculitis [Recovered/Resolved]
  - Toxic skin eruption [Recovered/Resolved]
  - Hepatic cytolysis [Recovered/Resolved]
  - Acute kidney injury [Recovered/Resolved]

NARRATIVE: CASE EVENT DATE: 20211025
